FAERS Safety Report 21232422 (Version 1)
Quarter: 2022Q3

REPORT INFORMATION
  Report Type: Spontaneous
  Country: US (occurrence: US)
  Receive Date: 20220819
  Receipt Date: 20220819
  Transmission Date: 20221026
  Serious: Yes (Other)
  Sender: FDA-Public Use
  Company Number: US-JNJFOC-20220825588

PATIENT
  Sex: Male

DRUGS (1)
  1. BENADRYL ALLERGY ULTRATAB [Suspect]
     Active Substance: DIPHENHYDRAMINE HYDROCHLORIDE
     Indication: Multiple allergies
     Dosage: ABOUT 30 OF BENADRYL
     Route: 065

REACTIONS (2)
  - Hallucination, visual [Not Recovered/Not Resolved]
  - Overdose [Unknown]
